FAERS Safety Report 7689681-7 (Version None)
Quarter: 2011Q3

REPORT INFORMATION
  Report Type: 
  Country: None (occurrence: None)
  Receive Date: 20110817
  Receipt Date: 20080930
  Transmission Date: 20111222
  Serious: Yes (Other)
  Sender: FDA-Public Use
  Company Number: US-BAYER-200717095NA

PATIENT
  Sex: Male

DRUGS (53)
  1. MAGNEVIST [Suspect]
     Dosage: 20CC
     Dates: start: 20040614, end: 20040614
  2. MAGNEVIST [Suspect]
     Dosage: UNK
     Dates: start: 19971216, end: 19971216
  3. MAGNEVIST [Suspect]
  4. MAGNEVIST [Suspect]
  5. OMNISCAN [Suspect]
     Dosage: UNK
     Dates: start: 19980420, end: 19980420
  6. MIRAPEX [Concomitant]
     Indication: RESTLESS LEGS SYNDROME
     Dosage: 0.125MG/DAILY
  7. CLONAZEPAM [Concomitant]
     Dosage: 0.5MG/DAILY
  8. MAGNEVIST [Suspect]
     Dosage: UNK
     Route: 042
     Dates: start: 20030529, end: 20030529
  9. OMNISCAN [Suspect]
     Dosage: 15CC
     Route: 042
     Dates: start: 19990817, end: 19990817
  10. OMNISCAN [Suspect]
     Dosage: UNK
     Dates: start: 20011204, end: 20011204
  11. PHOSLO [Concomitant]
     Dosage: 667MG
  12. SENSIPAR [Concomitant]
     Dosage: 240MG/DAILY
  13. MAGNEVIST [Suspect]
     Dosage: 20CC
     Dates: start: 20041013, end: 20041013
  14. OMNISCAN [Suspect]
     Dosage: 20CC
     Route: 042
     Dates: start: 19990614, end: 19990614
  15. OMNISCAN [Suspect]
     Dosage: UNK
     Dates: start: 19990621, end: 19990621
  16. PHOS-NAK [Concomitant]
  17. PREDNISONE [Concomitant]
  18. OMNISCAN [Suspect]
     Dosage: UNK
     Dates: start: 19980317, end: 19980317
  19. OMNISCAN [Suspect]
     Dosage: 15ML
     Route: 042
     Dates: start: 20001102, end: 20001102
  20. OMNISCAN [Suspect]
     Dosage: UNK
     Dates: start: 20010829, end: 20010829
  21. HYZAAR [Concomitant]
     Dosage: 100/25 DAILY
  22. BENAZEPRIL HYDROCHLORIDE [Concomitant]
     Dosage: 40MG/DAILY
  23. PROCRIT [Concomitant]
  24. GABAPENTIN [Concomitant]
     Dosage: 400MG
  25. CALCITRIOL [Concomitant]
     Dosage: 0.25MCG/2 CAPSULES DAILY
  26. MAGNEVIST [Suspect]
     Dosage: 15CC
     Route: 042
     Dates: start: 20050602, end: 20050602
  27. OMNISCAN [Suspect]
     Dosage: UNK
     Dates: start: 20000626, end: 20000626
  28. CARTIA XT [Concomitant]
     Dosage: 240MG/DAILY
  29. CELLCEPT [Concomitant]
     Dosage: 500MG/TWICE A DAY
  30. LISINOPRIL [Concomitant]
     Dosage: 40MG/DAILY
  31. MAGNEVIST [Suspect]
     Indication: NUCLEAR MAGNETIC RESONANCE IMAGING BRAIN
     Dosage: 20 CC
     Route: 042
     Dates: start: 20050811, end: 20050811
  32. OMNISCAN [Suspect]
     Dosage: UNK
     Dates: start: 20000104, end: 20000104
  33. OMNISCAN [Suspect]
     Dosage: UNK
     Dates: start: 20010524, end: 20010524
  34. OMNISCAN [Suspect]
     Dosage: UNK
     Dates: start: 19971114
  35. RENAGEL [Concomitant]
     Dosage: 800MG
  36. PANCREASE [Concomitant]
  37. LOTENSIN [Concomitant]
     Dosage: 40MG/DAILY
  38. MAGNEVIST [Suspect]
     Indication: NUCLEAR MAGNETIC RESONANCE IMAGING ABDOMINAL
     Route: 042
     Dates: start: 20060329, end: 20060329
  39. MAGNEVIST [Suspect]
     Dosage: UNK
     Dates: start: 19970808, end: 19970808
  40. OMNISCAN [Suspect]
     Indication: NUCLEAR MAGNETIC RESONANCE IMAGING
     Dosage: 15ML
     Dates: start: 20020826, end: 20020826
  41. OMNISCAN [Suspect]
     Indication: NUCLEAR MAGNETIC RESONANCE IMAGING BRAIN
     Dosage: UNK
     Dates: start: 20040825, end: 20040825
  42. FERROUS SULFATE TAB [Concomitant]
  43. ARANESP [Concomitant]
  44. NEPHROVITE [VIT C,VIT H,B5,B12,B9,B3,B6,B2,B1 HCL] [Concomitant]
  45. LOVENOX [Concomitant]
  46. GADOLINIUM IN UNSPECIFIED DRUG [Suspect]
     Indication: NUCLEAR MAGNETIC RESONANCE IMAGING
     Dosage: 20CC
     Route: 042
     Dates: start: 20030529, end: 20030529
  47. MAGNEVIST [Suspect]
     Dosage: 20ML
     Dates: start: 20040418, end: 20040418
  48. MAGNEVIST [Suspect]
     Dosage: UNK
     Dates: start: 19970429, end: 19970429
  49. OMNISCAN [Suspect]
     Dosage: 15ML
     Dates: start: 20020826, end: 20020826
  50. OMNISCAN [Suspect]
     Dosage: UNK
     Dates: start: 19981026, end: 19981026
  51. EPOGEN [Concomitant]
  52. TOPROL-XL [Concomitant]
     Dosage: 25MG/DAILY
  53. PROGRAF [Concomitant]
     Dosage: 8MG IN THE MORNING AND 8MG IN THE EVENING.

REACTIONS (17)
  - PAIN [None]
  - ANXIETY [None]
  - EMOTIONAL DISTRESS [None]
  - PAIN IN EXTREMITY [None]
  - NEPHROGENIC SYSTEMIC FIBROSIS [None]
  - ASTHENIA [None]
  - SCAR [None]
  - SKIN EXFOLIATION [None]
  - GENERAL PHYSICAL HEALTH DETERIORATION [None]
  - ARTHRALGIA [None]
  - SCLERODERMA [None]
  - JOINT CONTRACTURE [None]
  - HAND DEFORMITY [None]
  - INJURY [None]
  - PRURITUS [None]
  - SKIN INDURATION [None]
  - FIBROSIS [None]
